FAERS Safety Report 15804161 (Version 1)
Quarter: 2019Q1

REPORT INFORMATION
  Report Type: Spontaneous
  Country: US (occurrence: US)
  Receive Date: 20190109
  Receipt Date: 20190109
  Transmission Date: 20190417
  Serious: Yes (Death, Hospitalization, Other)
  Sender: FDA-Public Use
  Company Number: US-PFIZER INC-2019007820

PATIENT
  Age: 52 Year
  Sex: Male

DRUGS (4)
  1. ACETYLCYSTEINE. [Suspect]
     Active Substance: ACETYLCYSTEINE
     Dosage: UNK (TABLETS)
     Route: 051
  2. FENTANYL CITRATE. [Suspect]
     Active Substance: FENTANYL CITRATE
     Dosage: UNK
  3. PROPOFOL. [Suspect]
     Active Substance: PROPOFOL
     Dosage: UNK
  4. BOTULISM ANTITOXIN NOS [Suspect]
     Active Substance: BOTULISM ANTITOXIN
     Dosage: UNK
     Route: 051

REACTIONS (2)
  - Respiratory arrest [Fatal]
  - Death [Fatal]
